FAERS Safety Report 18171184 (Version 1)
Quarter: 2020Q3

REPORT INFORMATION
  Report Type: Spontaneous
  Country: DE (occurrence: DE)
  Receive Date: 20200819
  Receipt Date: 20200819
  Transmission Date: 20201103
  Serious: Yes (Hospitalization)
  Sender: FDA-Public Use
  Company Number: DE-TEVA-2020-DE-1815476

PATIENT
  Age: 56 Year
  Sex: Male
  Weight: 112 kg

DRUGS (11)
  1. METAMIZOLE [Suspect]
     Active Substance: METAMIZOLE
     Dosage: 1 G, 4X
  2. HYDROMORPHONE [Suspect]
     Active Substance: HYDROMORPHONE
     Dosage: 1.3 MG, 4X
  3. SPIRONOLACTON [Concomitant]
     Active Substance: SPIRONOLACTONE
     Dosage: 200 MILLIGRAM DAILY; 1?1?0?0
  4. RIFAXIMIN. [Concomitant]
     Active Substance: RIFAXIMIN
     Dosage: 1100 MILLIGRAM DAILY; 1?0?1?0
  5. HYDROMORPHONE [Suspect]
     Active Substance: HYDROMORPHONE
     Dosage: 2.6 MG, 4X
  6. PANTOPRAZOL [Concomitant]
     Active Substance: PANTOPRAZOLE SODIUM
     Dosage: 20 MILLIGRAM DAILY; 1?0?0?0
  7. TORASEMID [Concomitant]
     Active Substance: TORSEMIDE
     Dosage: 50 MILLIGRAM DAILY; 1?0?0?0
  8. FENTANYL. [Suspect]
     Active Substance: FENTANYL
     Dosage: 50 UG, LAST CHANGE 07032020
  9. LACTULOSE. [Concomitant]
     Active Substance: LACTULOSE
     Dosage: 75 ML DAILY; 1?1?1?0
  10. LEVOTHYROXIN?NATRIUM [Concomitant]
     Active Substance: LEVOTHYROXINE SODIUM
     Dosage: 75 MICROGRAM DAILY; 1?0?0?0
  11. MCP [Concomitant]
     Active Substance: METOCLOPRAMIDE HYDROCHLORIDE
     Dosage: 10 MG, 2X

REACTIONS (5)
  - Sciatica [Unknown]
  - Abdominal pain [Unknown]
  - Condition aggravated [Unknown]
  - Product prescribing error [Unknown]
  - Abdominal pain upper [Unknown]
